FAERS Safety Report 13159308 (Version 1)
Quarter: 2017Q1

REPORT INFORMATION
  Report Type: Spontaneous
  Country: JP (occurrence: JP)
  Receive Date: 20170127
  Receipt Date: 20170127
  Transmission Date: 20170428
  Serious: Yes (Other)
  Sender: FDA-Public Use
  Company Number: JP-GILEAD-2017-0254385

PATIENT
  Age: 80 Year
  Sex: Male

DRUGS (2)
  1. SOVALDI [Suspect]
     Active Substance: SOFOSBUVIR
     Indication: HEPATITIS C
     Dosage: UNK
     Route: 048
  2. REBETOL [Concomitant]
     Active Substance: RIBAVIRIN

REACTIONS (1)
  - Hepatocellular carcinoma [Not Recovered/Not Resolved]
